FAERS Safety Report 9439867 (Version 1)
Quarter: 2013Q3

REPORT INFORMATION
  Report Type: Spontaneous
  Country: US (occurrence: US)
  Receive Date: 20130805
  Receipt Date: 20130805
  Transmission Date: 20140515
  Serious: No
  Sender: FDA-Public Use
  Company Number: US-PFIZER INC-2013225585

PATIENT
  Sex: Female

DRUGS (1)
  1. ADVIL [Suspect]
     Indication: PAIN
     Dosage: 800 MG (4 TABLETS OF 200MG), 3 TIMES A DAY
     Route: 048

REACTIONS (2)
  - Overdose [Unknown]
  - Constipation [Unknown]
